FAERS Safety Report 9526400 (Version 2)
Quarter: 2013Q3

REPORT INFORMATION
  Report Type: Spontaneous
  Country: JP (occurrence: JP)
  Receive Date: 20130916
  Receipt Date: 20130916
  Transmission Date: 20140515
  Serious: Yes (Hospitalization)
  Sender: FDA-Public Use
  Company Number: JP-TAKEDA-THQ2013A06289

PATIENT
  Age: 67 Year
  Sex: Male

DRUGS (11)
  1. TAKEPRON CAPSULES 30 [Suspect]
     Dosage: 50 MG, TID
     Route: 048
     Dates: end: 20130813
  2. ACTOS OD TABLETS 15 [Suspect]
     Dosage: 15 MG, UNK
     Route: 048
  3. SEIBULE [Suspect]
     Route: 048
     Dates: start: 20130301, end: 20130813
  4. SEIBULE [Suspect]
     Route: 048
     Dates: start: 201308
  5. AZILSARTAN [Concomitant]
  6. LIPITOR [Concomitant]
  7. AMARYL [Concomitant]
  8. BAYASPIRIN [Concomitant]
  9. PLAVIX                             /01220701/ [Concomitant]
  10. JANUVIA [Concomitant]
  11. ARTIST [Concomitant]

REACTIONS (3)
  - Diarrhoea [Recovered/Resolved]
  - Dehydration [Recovered/Resolved]
  - Acute prerenal failure [Recovered/Resolved]
